FAERS Safety Report 24722783 (Version 2)
Quarter: 2024Q4

REPORT INFORMATION
  Report Type: Spontaneous
  Country: JP (occurrence: JP)
  Receive Date: 20241211
  Receipt Date: 20241217
  Transmission Date: 20250115
  Serious: Yes (Other)
  Sender: BRISTOL-MYERS SQUIBB COMPANY
  Company Number: JP-BRISTOL-MYERS SQUIBB COMPANY-2024-192067

PATIENT
  Age: 76 Year
  Sex: Male

DRUGS (2)
  1. VIDAZA [Suspect]
     Active Substance: AZACITIDINE
     Indication: Chronic myelomonocytic leukaemia
     Route: 042
  2. VENCLEXTA [Concomitant]
     Active Substance: VENETOCLAX
     Indication: Chronic myelomonocytic leukaemia

REACTIONS (1)
  - Plasmacytoma [Recovering/Resolving]
